FAERS Safety Report 19062654 (Version 1)
Quarter: 2021Q1

REPORT INFORMATION
  Report Type: Report from Study
  Country: NL (occurrence: NL)
  Receive Date: 20210326
  Receipt Date: 20210326
  Transmission Date: 20210420
  Serious: Yes (Hospitalization, Other)
  Sender: FDA-Public Use
  Company Number: NL-PFIZER INC-2021287525

PATIENT

DRUGS (31)
  1. GIVLAARI [Suspect]
     Active Substance: GIVOSIRAN SODIUM
     Dosage: 186.3 MG, MONTHLY
     Route: 058
     Dates: start: 20210125, end: 20210125
  2. OMEPRAZOL [Concomitant]
     Active Substance: OMEPRAZOLE
     Dosage: 20 MG, 1X/DAY
     Route: 048
  3. GIVLAARI [Suspect]
     Active Substance: GIVOSIRAN SODIUM
     Dosage: 178.5 MG, MONTHLY
     Route: 058
     Dates: start: 20200615, end: 20200615
  4. PROMETHAZINE [Suspect]
     Active Substance: PROMETHAZINE HYDROCHLORIDE
     Indication: COUGH
  5. GIVLAARI [Suspect]
     Active Substance: GIVOSIRAN SODIUM
     Indication: PORPHYRIA ACUTE
     Dosage: 179.5 MILLIGRAM, SINGLE
     Route: 058
     Dates: start: 20200323, end: 20200323
  6. GIVLAARI [Suspect]
     Active Substance: GIVOSIRAN SODIUM
     Dosage: 175.25 MG, SINGLE
     Route: 058
     Dates: start: 20200420, end: 20200420
  7. GIVLAARI [Suspect]
     Active Substance: GIVOSIRAN SODIUM
     Dosage: 182.5 MILLIGRAM, MONTHLY
     Route: 058
     Dates: start: 20210222
  8. GIVLAARI [Suspect]
     Active Substance: GIVOSIRAN SODIUM
     Dosage: 186.5 MG, MONTHLY
     Route: 058
  9. MULTIVITAMIN DIENET [Concomitant]
     Indication: HYPOVITAMINOSIS
     Dosage: UNK UNK, 1X/DAY
     Route: 048
     Dates: start: 20200204
  10. MOVICOL NEUTRAL [Concomitant]
     Active Substance: POLYETHYLENE GLYCOL 3350\POTASSIUM CHLORIDE\SODIUM BICARBONATE\SODIUM CHLORIDE
     Indication: CONSTIPATION
     Dosage: 13.8 G, 1X/DAY
     Route: 048
  11. HYDROXYCARBAMIDE CAPSULE [Concomitant]
     Dosage: 1000 MILLIGRAM, QD
     Route: 048
     Dates: start: 20191119, end: 20200723
  12. LISINOPRIL. [Suspect]
     Active Substance: LISINOPRIL
     Dosage: 5 MG, 1X/DAY
     Dates: start: 20201228, end: 20210111
  13. GIVLAARI [Suspect]
     Active Substance: GIVOSIRAN SODIUM
     Dosage: 173.5 MG, SINGLE
     Route: 058
     Dates: start: 20200518, end: 20200518
  14. GIVLAARI [Suspect]
     Active Substance: GIVOSIRAN SODIUM
     Dosage: 181.5 MG, MONTHLY
     Route: 058
     Dates: start: 20201005
  15. GIVLAARI [Suspect]
     Active Substance: GIVOSIRAN SODIUM
     Dosage: 186.5 MG, MONTHLY
     Route: 058
  16. GIVLAARI [Suspect]
     Active Substance: GIVOSIRAN SODIUM
     Dosage: 184 MILLIGRAM, MONTHLY
     Route: 058
     Dates: start: 20201228, end: 20201228
  17. GIVLAARI [Suspect]
     Active Substance: GIVOSIRAN SODIUM
     Dosage: 186.3 MG, MONTHLY
     Route: 058
  18. OMEPRAZOL [Concomitant]
     Active Substance: OMEPRAZOLE
     Indication: REFLUX GASTRITIS
     Dosage: 40 MG, AS NEEDED
     Route: 048
     Dates: start: 20200622, end: 20200811
  19. OMEPRAZOL [Concomitant]
     Active Substance: OMEPRAZOLE
     Dosage: 20 MG EVERY OTHER DAY
     Route: 048
     Dates: start: 20200811, end: 20210222
  20. METOPROLOL. [Concomitant]
     Active Substance: METOPROLOL
     Dosage: 100 MG, 1X/DAY
     Route: 048
     Dates: start: 20200715
  21. HYDROXYCARBAMIDE [Concomitant]
     Active Substance: HYDROXYUREA
     Indication: PORPHYRIA ACUTE
     Dosage: 1000 MG, 1X/DAY
     Route: 048
     Dates: start: 20191129, end: 20200723
  22. GIVLAARI [Suspect]
     Active Substance: GIVOSIRAN SODIUM
     Dosage: 179.5 MG, SINGLE
     Route: 058
     Dates: start: 20200713
  23. OMEPRAZOL [Concomitant]
     Active Substance: OMEPRAZOLE
     Dosage: 20 MG, 2X/DAY
     Route: 048
     Dates: start: 20210222
  24. METOPROLOL. [Concomitant]
     Active Substance: METOPROLOL
     Dosage: 100 MG, 1X/DAY
     Route: 048
  25. TERIPARATIDE [Concomitant]
     Active Substance: TERIPARATIDE
     Indication: OSTEOPOROSIS
     Dosage: 20 UG, 1X/DAY FOR 24 MONTHS
     Dates: start: 202102
  26. AMLODIPINE BESILATE [Suspect]
     Active Substance: AMLODIPINE BESYLATE
     Indication: HYPERTENSION
     Dosage: 10 MG, 1X/DAY
     Route: 048
     Dates: start: 20191126, end: 20201228
  27. MULTIVITAMIN DIENET [Concomitant]
     Indication: SUPPLEMENTATION THERAPY
  28. DEFERASIROX. [Concomitant]
     Active Substance: DEFERASIROX
     Indication: IRON OVERLOAD
     Dosage: 720 MG, 1X/DAY
     Route: 048
     Dates: start: 20191209, end: 20200709
  29. DEFERASIROX. [Concomitant]
     Active Substance: DEFERASIROX
     Dosage: 360 MG, 1X/DAY
     Route: 048
     Dates: start: 20200709
  30. METOPROLOL. [Concomitant]
     Active Substance: METOPROLOL
     Indication: HYPERTENSION
     Dosage: 50 MG, 1X/DAY
     Route: 048
     Dates: start: 20191209, end: 20200715
  31. HYDROXYCARBAMIDE [Concomitant]
     Active Substance: HYDROXYUREA
     Dosage: 1500 MG
     Route: 048
     Dates: start: 20200723

REACTIONS (37)
  - Leukopenia [Recovered/Resolved]
  - Burning sensation [Recovered/Resolved]
  - Pain in jaw [Recovered/Resolved]
  - Injection site pain [Recovered/Resolved]
  - Renal failure [Recovered/Resolved]
  - Vomiting [Recovered/Resolved]
  - Vomiting [Recovered/Resolved]
  - Nausea [Recovered/Resolved]
  - Oedema peripheral [Recovered/Resolved]
  - Vomiting [Recovered/Resolved]
  - Malaise [Recovered/Resolved]
  - Fatigue [Recovered/Resolved]
  - Respiration abnormal [Recovered/Resolved]
  - Abdominal pain lower [Recovered/Resolved]
  - Dyspepsia [Recovered/Resolved]
  - Vomiting [Recovered/Resolved]
  - Abdominal pain [Recovered/Resolved]
  - Ear pain [Recovered/Resolved]
  - Cough [Recovered/Resolved]
  - Paraesthesia [Recovered/Resolved]
  - Platelet count decreased [Recovered/Resolved]
  - Oedema peripheral [Recovered/Resolved]
  - Burning sensation [Recovered/Resolved]
  - Pain in extremity [Recovered/Resolved]
  - Injection site erythema [Recovered/Resolved]
  - Rash [Not Recovered/Not Resolved]
  - Vomiting [Recovered/Resolved]
  - Abdominal pain [Recovered/Resolved]
  - Cough [Recovered/Resolved]
  - Nausea [Recovered/Resolved]
  - Pain in extremity [Not Recovered/Not Resolved]
  - Vomiting [Not Recovered/Not Resolved]
  - Somnolence [Recovered/Resolved]
  - Vomiting [Recovered/Resolved]
  - Cough [Not Recovered/Not Resolved]
  - Paraesthesia [Recovered/Resolved]
  - Fatigue [Recovered/Resolved]

NARRATIVE: CASE EVENT DATE: 20200323
